FAERS Safety Report 9980954 (Version 3)
Quarter: 2014Q2

REPORT INFORMATION
  Report Type: Spontaneous
  Country: DE (occurrence: DE)
  Receive Date: 20140307
  Receipt Date: 20140619
  Transmission Date: 20141212
  Serious: Yes (Other)
  Sender: FDA-Public Use
  Company Number: DE-JNJFOC-20140217264

PATIENT
  Age: 23 Year
  Sex: Male

DRUGS (6)
  1. XEPLION [Suspect]
     Indication: PSYCHOTIC DISORDER
     Route: 030
     Dates: end: 20131122
  2. XEPLION [Suspect]
     Indication: PSYCHOTIC DISORDER
     Route: 030
  3. XEPLION [Suspect]
     Indication: PSYCHOTIC DISORDER
     Route: 030
     Dates: start: 20130827, end: 201309
  4. RISPERDAL [Suspect]
     Indication: PRODUCT USED FOR UNKNOWN INDICATION
     Route: 048
     Dates: end: 20130905
  5. FLUPENTIXOL [Interacting]
     Indication: PRODUCT USED FOR UNKNOWN INDICATION
     Dosage: 2, 5, 2 MG, DOSE REDUCED GRADUALLY
     Route: 065
     Dates: start: 20131031, end: 201312
  6. ORFIRIL [Concomitant]
     Dosage: 500, 0, 500 MG
     Route: 065
     Dates: start: 20131017, end: 20140227

REACTIONS (8)
  - Atrial fibrillation [Not Recovered/Not Resolved]
  - Sinus bradycardia [Unknown]
  - Electrocardiogram QT prolonged [Not Recovered/Not Resolved]
  - Drug interaction [Not Recovered/Not Resolved]
  - Supraventricular extrasystoles [Unknown]
  - Ventricular extrasystoles [Unknown]
  - Electrocardiogram repolarisation abnormality [Unknown]
  - Refusal of treatment by patient [Not Recovered/Not Resolved]
